FAERS Safety Report 6838372-0 (Version None)
Quarter: 2010Q3

REPORT INFORMATION
  Report Type: 
  Country: None (occurrence: None)
  Receive Date: 20100713
  Receipt Date: 20070608
  Transmission Date: 20110219
  Serious: No
  Sender: FDA-Public Use
  Company Number: US-PFIZER INC-2007048360

PATIENT
  Sex: Female
  Weight: 93.1 kg

DRUGS (4)
  1. CHANTIX [Suspect]
     Indication: SMOKING CESSATION THERAPY
     Dates: start: 20070604
  2. TICLOPIDINE HCL [Concomitant]
  3. INSULIN [Concomitant]
  4. VALIUM [Concomitant]

REACTIONS (4)
  - DIARRHOEA [None]
  - INCORRECT DOSE ADMINISTERED [None]
  - INSOMNIA [None]
  - NAUSEA [None]
